FAERS Safety Report 6730579-6 (Version None)
Quarter: 2010Q2

REPORT INFORMATION
  Report Type: 
  Country: None (occurrence: None)
  Receive Date: 20100518
  Receipt Date: 20100511
  Transmission Date: 20101027
  Serious: Yes (Other)
  Sender: FDA-Public Use
  Company Number: US-BAUSCH-2009BL004587

PATIENT
  Sex: Female

DRUGS (3)
  1. ALREX [Suspect]
     Indication: CONJUNCTIVITIS ALLERGIC
     Route: 047
  2. RESTASIS [Concomitant]
     Indication: CONJUNCTIVITIS ALLERGIC
  3. ELESTAT [Concomitant]
     Indication: CONJUNCTIVITIS ALLERGIC

REACTIONS (2)
  - ABORTION SPONTANEOUS [None]
  - DRUG EXPOSURE DURING PREGNANCY [None]
